FAERS Safety Report 19654364 (Version 8)
Quarter: 2022Q3

REPORT INFORMATION
  Report Type: Report from Study
  Country: US (occurrence: US)
  Receive Date: 20210803
  Receipt Date: 20220630
  Transmission Date: 20221027
  Serious: Yes (Hospitalization, Other)
  Sender: FDA-Public Use
  Company Number: NVSC2021US174306

PATIENT
  Age: 61 Year
  Sex: Male

DRUGS (1)
  1. ENTRESTO [Suspect]
     Active Substance: SACUBITRIL\VALSARTAN
     Indication: Product used for unknown indication
     Dosage: 1 DOSAGE FORM, BID (24/26MG)
     Route: 048
     Dates: start: 202107

REACTIONS (13)
  - Lymphoedema [Recovered/Resolved]
  - Cardiac failure [Unknown]
  - Blood glucose increased [Recovering/Resolving]
  - Protein total increased [Unknown]
  - Weight decreased [Recovering/Resolving]
  - Weight fluctuation [Unknown]
  - Nasal congestion [Unknown]
  - Sneezing [Unknown]
  - Pollakiuria [Unknown]
  - Weight increased [Recovering/Resolving]
  - Feeling abnormal [Unknown]
  - Cough [Unknown]
  - Product dose omission in error [Unknown]

NARRATIVE: CASE EVENT DATE: 20211001
